FAERS Safety Report 13329202 (Version 1)
Quarter: 2017Q1

REPORT INFORMATION
  Report Type: Spontaneous
  Country: US (occurrence: US)
  Receive Date: 20170310
  Receipt Date: 20170310
  Transmission Date: 20170428
  Serious: Yes (Other)
  Sender: FDA-Public Use
  Company Number: None

PATIENT
  Age: 64 Year
  Sex: Female

DRUGS (1)
  1. TOLMETIN SOD 400MG MYLAN [Suspect]
     Active Substance: TOLMETIN SODIUM
     Dosage: APPROX 800MG PER PT BID PO
     Route: 048
     Dates: start: 20170220, end: 20170308

REACTIONS (2)
  - Product substitution issue [None]
  - Drug ineffective [None]

NARRATIVE: CASE EVENT DATE: 20170220
